FAERS Safety Report 17404256 (Version 1)
Quarter: 2020Q1

REPORT INFORMATION
  Report Type: Report from Study
  Country: CA (occurrence: CA)
  Receive Date: 20200211
  Receipt Date: 20200211
  Transmission Date: 20200409
  Serious: Yes (Other)
  Sender: FDA-Public Use
  Company Number: CA-NALPROPION PHARMACEUTICALS INC.-2020-009569

PATIENT

DRUGS (3)
  1. LIRAGLUTIDE [Suspect]
     Active Substance: LIRAGLUTIDE
     Dosage: UNK
     Route: 065
  2. CONTRAVE [Suspect]
     Active Substance: BUPROPION HYDROCHLORIDE\NALTREXONE HYDROCHLORIDE
     Indication: PRODUCT USED FOR UNKNOWN INDICATION
     Dosage: DOSAGE FORM: TABLET (EXTENDED RELEASE)
     Route: 065
  3. LIRAGLUTIDE [Suspect]
     Active Substance: LIRAGLUTIDE
     Indication: WEIGHT CONTROL
     Dosage: UNK
     Route: 065

REACTIONS (2)
  - Weight loss poor [Not Recovered/Not Resolved]
  - Breast cancer [Not Recovered/Not Resolved]
